FAERS Safety Report 9899230 (Version 2)
Quarter: 2014Q1

REPORT INFORMATION
  Report Type: Spontaneous
  Country: US (occurrence: US)
  Receive Date: 20140214
  Receipt Date: 20140214
  Transmission Date: 20141002
  Serious: No
  Sender: FDA-Public Use
  Company Number: US-GILEAD-2011-0046239

PATIENT
  Sex: Male

DRUGS (3)
  1. LETAIRIS [Suspect]
     Indication: PULMONARY HYPERTENSION
     Dosage: 5 MG, UNK
     Route: 048
     Dates: start: 20111027, end: 20111111
  2. LETAIRIS [Suspect]
     Indication: CARDIAC FAILURE CONGESTIVE
  3. ADCIRCA [Concomitant]

REACTIONS (3)
  - Dizziness [Unknown]
  - Diarrhoea [Unknown]
  - Dyspnoea [Unknown]
